FAERS Safety Report 9369614 (Version 1)
Quarter: 2013Q2

REPORT INFORMATION
  Report Type: Spontaneous
  Country: US (occurrence: None)
  Receive Date: 20130625
  Receipt Date: 20130625
  Transmission Date: 20140414
  Serious: Yes (Disabling, Other)
  Sender: FDA-Public Use
  Company Number: None

PATIENT
  Age: 86 Year
  Sex: Female
  Weight: 62.14 kg

DRUGS (18)
  1. RESTASIS [Suspect]
     Indication: DRY EYE
     Dosage: 0.05%?36 SINGLE USE VIALS?1 DROP TWICE DAILY IN EACH EYE?EYE DROPS
     Dates: start: 20130305, end: 20130517
  2. ATROVENT [Concomitant]
  3. PREMARIN [Concomitant]
  4. SYNTHROID 100MCG [Concomitant]
  5. LORAZEPAM 1MG [Concomitant]
  6. FLOVENT HFP 110MCG [Concomitant]
  7. FUROSEMIDE 40MG [Concomitant]
  8. POT. CHLORIDE 10MEQ [Concomitant]
  9. DIGOXIN .125MG [Concomitant]
  10. METOPROLOL 50MG [Concomitant]
  11. FAMOTIDINE 20MG [Concomitant]
  12. B12 SHOT 1MG [Concomitant]
  13. VITAMIN E 400IU [Concomitant]
  14. CENTRUM [Concomitant]
  15. CALCIUM + D 600MG [Concomitant]
  16. VITAMIN C 500MG [Concomitant]
  17. ZYRTEC [Concomitant]
  18. STOOL SOFTNER [Concomitant]

REACTIONS (3)
  - Platelet count decreased [None]
  - Red blood cell count decreased [None]
  - White blood cell count decreased [None]
